FAERS Safety Report 20851240 (Version 1)
Quarter: 2022Q2

REPORT INFORMATION
  Report Type: Spontaneous
  Country: FR (occurrence: FR)
  Receive Date: 20220519
  Receipt Date: 20220519
  Transmission Date: 20220721
  Serious: Yes (Death, Life-Threatening)
  Sender: FDA-Public Use
  Company Number: None

PATIENT
  Age: 76 Year
  Sex: Male

DRUGS (2)
  1. KEYTRUDA [Suspect]
     Active Substance: PEMBROLIZUMAB
     Indication: Lung adenocarcinoma
     Dosage: 1 DOSAGE FORM, 1 CYCLICAL
     Route: 042
     Dates: start: 20220203, end: 20220203
  2. COMIRNATY [Suspect]
     Active Substance: TOZINAMERAN
     Indication: COVID-19 immunisation
     Dosage: 1 DOSAGE FORM, QD, D1+D2, 30 MICROGRAMS/DOSE
     Route: 030
     Dates: start: 20220218, end: 20220218

REACTIONS (4)
  - Malaise [Fatal]
  - Coma [Fatal]
  - Sinus bradycardia [Fatal]
  - Arrhythmia supraventricular [Fatal]

NARRATIVE: CASE EVENT DATE: 20220221
